FAERS Safety Report 9848361 (Version 1)
Quarter: 2014Q1

REPORT INFORMATION
  Report Type: Spontaneous
  Country: US (occurrence: None)
  Receive Date: 20140122
  Receipt Date: 20140122
  Transmission Date: 20141002
  Serious: Yes (Life-Threatening)
  Sender: FDA-Public Use
  Company Number: B0959166A

PATIENT
  Age: 41 Year
  Sex: Male

DRUGS (4)
  1. LAMOTRIGINE [Suspect]
     Route: 048
  2. NORTRIPTYLINE [Suspect]
     Route: 048
  3. ETHANOL [Suspect]
     Route: 048
  4. ZOLPIDEM [Suspect]
     Route: 048

REACTIONS (1)
  - Completed suicide [None]
